FAERS Safety Report 4871128-7 (Version None)
Quarter: 2005Q4

REPORT INFORMATION
  Report Type: 
  Country: None (occurrence: None)
  Receive Date: 20051229
  Receipt Date: 20051208
  Transmission Date: 20060501
  Serious: Yes (Other)
  Sender: FDA-Public Use
  Company Number: IL200512002745

PATIENT
  Age: 68 Year
  Sex: Male

DRUGS (1)
  1. CYMBALTA [Suspect]
     Indication: DIABETIC NEPHROPATHY
     Dosage: ORAL
     Route: 048

REACTIONS (5)
  - ANXIETY [None]
  - CONFUSIONAL STATE [None]
  - DELUSIONAL DISORDER, UNSPECIFIED TYPE [None]
  - DISORIENTATION [None]
  - RESTLESSNESS [None]
